FAERS Safety Report 7364915-7 (Version None)
Quarter: 2011Q1

REPORT INFORMATION
  Report Type: 
  Country: None (occurrence: None)
  Receive Date: 20110321
  Receipt Date: 20110310
  Transmission Date: 20110831
  Serious: Yes (Hospitalization)
  Sender: FDA-Public Use
  Company Number: BR-ASTRAZENECA-2011SE13932

PATIENT
  Sex: Female

DRUGS (2)
  1. SYMBICORT [Suspect]
     Indication: EMPHYSEMA
     Dosage: 4.5/80 MCG, UNK
     Route: 055
     Dates: start: 20101001, end: 20110201
  2. SYMBICORT [Suspect]
     Dosage: 4.5/80 MCG, UNK
     Route: 055
     Dates: start: 20110301

REACTIONS (1)
  - CEREBROVASCULAR ACCIDENT [None]
